FAERS Safety Report 18329524 (Version 2)
Quarter: 2020Q4

REPORT INFORMATION
  Report Type: Spontaneous
  Country: US (occurrence: US)
  Receive Date: 20200930
  Receipt Date: 20201109
  Transmission Date: 20210113
  Serious: No
  Sender: FDA-Public Use
  Company Number: US-PFIZER INC-2020375654

PATIENT

DRUGS (2)
  1. ALEVE [Suspect]
     Active Substance: NAPROXEN SODIUM
     Indication: PAIN
     Dosage: UNK [I NORMALLY TAKE 3-4 CAPLETS]
  2. ADVIL [Suspect]
     Active Substance: IBUPROFEN
     Dosage: UNK [I NORMALLY TAKE 3-4 CAPLETS]

REACTIONS (1)
  - Drug ineffective [Unknown]
